FAERS Safety Report 5197174-4 (Version None)
Quarter: 2007Q1

REPORT INFORMATION
  Report Type: 
  Country: None (occurrence: None)
  Receive Date: 20070103
  Receipt Date: 20061227
  Transmission Date: 20070707
  Serious: Yes (Death)
  Sender: FDA-Public Use
  Company Number: NL-BRISTOL-MYERS SQUIBB COMPANY-13625462

PATIENT
  Age: 56 Year
  Sex: Female
  Weight: 58 kg

DRUGS (4)
  1. ETOPOSIDE [Suspect]
     Dates: start: 20061019, end: 20061021
  2. CISPLATIN [Suspect]
     Dates: start: 20061019, end: 20061019
  3. DEXAMETHASONE [Concomitant]
  4. ONDANSETRON [Concomitant]

REACTIONS (3)
  - CARDIOMYOPATHY [None]
  - DEATH [None]
  - RENAL FAILURE [None]
